FAERS Safety Report 17467966 (Version 1)
Quarter: 2020Q1

REPORT INFORMATION
  Report Type: Spontaneous
  Country: US (occurrence: US)
  Receive Date: 20200214
  Receipt Date: 20200214
  Transmission Date: 20200409
  Serious: Yes (Hospitalization)
  Sender: FDA-Public Use
  Company Number: None

PATIENT
  Age: 2 Year
  Sex: Male

DRUGS (17)
  1. AMLODIPINE [Concomitant]
     Active Substance: AMLODIPINE BESYLATE
  2. BUDESONIDE. [Concomitant]
     Active Substance: BUDESONIDE
  3. DESONIDE. [Concomitant]
     Active Substance: DESONIDE
  4. TRIAMCINOLON [Concomitant]
  5. CUVITRU [Concomitant]
     Active Substance: HUMAN IMMUNOGLOBULIN G
  6. MULTI-VIT [Concomitant]
     Active Substance: VITAMINS
  7. SYNAGIS [Suspect]
     Active Substance: PALIVIZUMAB
     Indication: IMMUNODEFICIENCY
     Route: 041
     Dates: start: 20191119
  8. ACYCLOVIR. [Concomitant]
     Active Substance: ACYCLOVIR
  9. CALCIUM [Concomitant]
     Active Substance: CALCIUM
  10. BACTRIM [Concomitant]
     Active Substance: SULFAMETHOXAZOLE\TRIMETHOPRIM
  11. MAG-200 [Concomitant]
  12. MOMETASON [Concomitant]
     Active Substance: MOMETASONE FUROATE
  13. PREDNISOLONE. [Concomitant]
     Active Substance: PREDNISOLONE
  14. VANICREAM [Concomitant]
     Active Substance: TITANIUM DIOXIDE\ZINC OXIDE
  15. VITAMIN D [Concomitant]
     Active Substance: VITAMIN D NOS
  16. BECLOMETHASO [Concomitant]
  17. OMEPRAZOLE. [Concomitant]
     Active Substance: OMEPRAZOLE

REACTIONS (2)
  - Therapy cessation [None]
  - Hospitalisation [None]

NARRATIVE: CASE EVENT DATE: 20200210
